FAERS Safety Report 18262578 (Version 1)
Quarter: 2020Q3

REPORT INFORMATION
  Report Type: Spontaneous
  Country: US (occurrence: US)
  Receive Date: 20200911
  Receipt Date: 20200911
  Transmission Date: 20201103
  Serious: Yes (Hospitalization)
  Sender: FDA-Public Use
  Company Number: None

PATIENT
  Sex: Female

DRUGS (12)
  1. HYDROCO/APAP [Concomitant]
     Active Substance: ACETAMINOPHEN\HYDROCODONE
  2. PROAIR RESPI [Concomitant]
  3. ASMANEX HFA [Concomitant]
     Active Substance: MOMETASONE FUROATE
  4. CEPHALEXIN. [Concomitant]
     Active Substance: CEPHALEXIN
  5. PRALUENT [Suspect]
     Active Substance: ALIROCUMAB
     Indication: ARTERIOSCLEROSIS
     Route: 058
     Dates: start: 20181009
  6. COZAAR [Concomitant]
     Active Substance: LOSARTAN POTASSIUM
  7. OLOPATADINE. [Concomitant]
     Active Substance: OLOPATADINE
  8. TYLENOL [Concomitant]
     Active Substance: ACETAMINOPHEN
  9. GABAPENTIN. [Concomitant]
     Active Substance: GABAPENTIN
  10. A?HYDROCORT [Concomitant]
     Active Substance: HYDROCORTISONE SODIUM SUCCINATE
  11. TAMSULOSIN [Concomitant]
     Active Substance: TAMSULOSIN
  12. SMZ/TMP DS [Concomitant]
     Active Substance: SULFAMETHOXAZOLE\TRIMETHOPRIM

REACTIONS (2)
  - Loss of consciousness [None]
  - Blood pressure decreased [None]
